FAERS Safety Report 4643619-5 (Version None)
Quarter: 2005Q2

REPORT INFORMATION
  Report Type: 
  Country: None (occurrence: None)
  Receive Date: 20050425
  Receipt Date: 20050412
  Transmission Date: 20051028
  Serious: Yes (Hospitalization)
  Sender: FDA-Public Use
  Company Number: US-AMGEN-US126328

PATIENT
  Sex: Male

DRUGS (1)
  1. EPOGEN [Suspect]
     Indication: DIALYSIS
     Dates: start: 20040716

REACTIONS (5)
  - FALL [None]
  - FOOT AMPUTATION [None]
  - IMPAIRED HEALING [None]
  - LEG AMPUTATION [None]
  - RESPIRATORY DISTRESS [None]
